FAERS Safety Report 4653969-4 (Version None)
Quarter: 2005Q2

REPORT INFORMATION
  Report Type: 
  Country: None (occurrence: None)
  Receive Date: 20050504
  Receipt Date: 20050420
  Transmission Date: 20051028
  Serious: Yes (Other)
  Sender: FDA-Public Use
  Company Number: 2005063892

PATIENT

DRUGS (1)
  1. VIRACEPT [Suspect]
     Indication: HIV TEST POSITIVE
     Dosage: ORAL
     Route: 048

REACTIONS (2)
  - RASH MACULO-PAPULAR [None]
  - TOXIC SKIN ERUPTION [None]
